FAERS Safety Report 6924119-6 (Version None)
Quarter: 2010Q3

REPORT INFORMATION
  Report Type: 
  Country: None (occurrence: None)
  Receive Date: 20100813
  Receipt Date: 20100804
  Transmission Date: 20110219
  Serious: Yes (Death, Hospitalization, Other)
  Sender: FDA-Public Use
  Company Number: US-ABBOTT-10P-163-0661258-00

PATIENT
  Sex: Male
  Weight: 68.1 kg

DRUGS (10)
  1. DEPAKOTE [Suspect]
     Indication: MANIA
     Dosage: 1500 MG DAILY
     Route: 048
     Dates: start: 20080901, end: 20090122
  2. DEPAKOTE [Suspect]
     Indication: BIPOLAR I DISORDER
     Dosage: TOOK (DAILY DOSE OF 1500MG) 9 DAYS WORTH OF DEPAKOTE IN ONE EVENING.
     Dates: start: 20090122, end: 20090122
  3. DEPAKOTE [Suspect]
     Route: 048
     Dates: start: 20090205, end: 20090209
  4. SEROQUEL [Suspect]
     Indication: MANIA
     Dosage: 350 MG DAILY
     Route: 048
     Dates: start: 20080901, end: 20090122
  5. SEROQUEL [Suspect]
     Indication: BIPOLAR I DISORDER
     Dosage: TOOK (DAILY DOSE OF 350MG) 9 DAYS WORTH OF SEROQUEL IN ONE EVENING.
     Route: 048
     Dates: start: 20090122, end: 20090122
  6. SEROQUEL [Suspect]
     Route: 048
     Dates: start: 20090205, end: 20090209
  7. ATIVAN [Suspect]
     Indication: PRODUCT USED FOR UNKNOWN INDICATION
     Dates: start: 20090122, end: 20090122
  8. CELEXA [Concomitant]
     Indication: DEPRESSION
     Route: 048
     Dates: start: 20090205, end: 20090209
  9. VISTARIL [Concomitant]
     Indication: ANXIETY
     Dosage: PRESCRIBED MEDICATION ON 05 FEB 2010, BUT DID NOT END UP TAKING MEDICATION.
     Route: 048
  10. IBUPROFEN [Concomitant]
     Indication: PRODUCT USED FOR UNKNOWN INDICATION
     Dosage: PRESCRIBED MEDICATION ON 05 FEB 2010, BUT DID NOT END UP TAKING MEDICATION.
     Route: 048
     Dates: start: 20090205

REACTIONS (14)
  - AGGRESSION [None]
  - AREFLEXIA [None]
  - ASPHYXIA [None]
  - COMA [None]
  - CRYING [None]
  - DEPRESSION [None]
  - DRUG TOXICITY [None]
  - EMOTIONAL DISTRESS [None]
  - FEAR [None]
  - LOSS OF CONSCIOUSNESS [None]
  - OVERDOSE [None]
  - SUICIDAL IDEATION [None]
  - SUICIDE ATTEMPT [None]
  - WEIGHT DECREASED [None]
